FAERS Safety Report 16813671 (Version 1)
Quarter: 2019Q3

REPORT INFORMATION
  Report Type: Spontaneous
  Country: BG (occurrence: BG)
  Receive Date: 20190917
  Receipt Date: 20190917
  Transmission Date: 20191005
  Serious: Yes (Other)
  Sender: FDA-Public Use
  Company Number: BG-AMGEN-BGRSP2019148745

PATIENT
  Age: 38 Year
  Sex: Male

DRUGS (3)
  1. KEYTRUDA [Suspect]
     Active Substance: PEMBROLIZUMAB
     Indication: MALIGNANT MELANOMA STAGE III
     Dosage: 2 MICROGRAM/KILOGRAM, Q4WK
     Route: 065
     Dates: start: 201612
  2. KEYTRUDA [Suspect]
     Active Substance: PEMBROLIZUMAB
     Dosage: 200 MILLIGRAM
     Route: 065
     Dates: start: 201712
  3. XGEVA [Suspect]
     Active Substance: DENOSUMAB
     Indication: MALIGNANT MELANOMA STAGE III
     Dosage: 120 MILLIGRAM/28 DAYS
     Route: 058
     Dates: start: 201612

REACTIONS (3)
  - Inappropriate schedule of product administration [Unknown]
  - Basedow^s disease [Recovering/Resolving]
  - Blood lactate dehydrogenase abnormal [Recovered/Resolved]

NARRATIVE: CASE EVENT DATE: 201612
